FAERS Safety Report 25896299 (Version 1)
Quarter: 2025Q4

REPORT INFORMATION
  Report Type: Spontaneous
  Country: US (occurrence: None)
  Receive Date: 20251008
  Receipt Date: 20251008
  Transmission Date: 20260118
  Serious: No
  Sender: FDA-CTU
  Company Number: None

PATIENT
  Age: 50 Year
  Sex: Male

DRUGS (4)
  1. WINREVAIR [Suspect]
     Active Substance: SOTATERCEPT-CSRK
     Indication: Pulmonary arterial hypertension
     Dosage: FREQUENCY : EVERY THREE WEEKS;?
     Route: 058
     Dates: start: 20250303
  2. REMUNITY CART W/FILL AID [Concomitant]
  3. REMODULIN [Concomitant]
     Active Substance: TREPROSTINIL
  4. OPSUMIT [Concomitant]
     Active Substance: MACITENTAN

REACTIONS (4)
  - Device issue [None]
  - Syringe issue [None]
  - Wrong technique in device usage process [None]
  - Wrong dose [None]

NARRATIVE: CASE EVENT DATE: 20250731
